FAERS Safety Report 24208620 (Version 3)
Quarter: 2024Q3

REPORT INFORMATION
  Report Type: Spontaneous
  Country: JP (occurrence: JP)
  Receive Date: 20240814
  Receipt Date: 20240830
  Transmission Date: 20241017
  Serious: No
  Sender: MERCK
  Company Number: JP-MSD-M2024-31039

PATIENT
  Age: 66 Year
  Sex: Female

DRUGS (1)
  1. LAGEVRIO [Suspect]
     Active Substance: MOLNUPIRAVIR
     Indication: COVID-19 treatment
     Dosage: 1200 MILLIGRAM
     Route: 048
     Dates: start: 202407, end: 2024

REACTIONS (4)
  - SARS-CoV-2 test positive [Unknown]
  - Prescription drug used without a prescription [Unknown]
  - Underdose [Unknown]
  - Product use issue [Unknown]

NARRATIVE: CASE EVENT DATE: 20240728
